FAERS Safety Report 6587757-9 (Version None)
Quarter: 2010Q1

REPORT INFORMATION
  Report Type: 
  Country: None (occurrence: None)
  Receive Date: 20100217
  Receipt Date: 20100217
  Transmission Date: 20100710
  Serious: Yes (Other)
  Sender: FDA-Public Use
  Company Number: None

PATIENT
  Age: 76 Year
  Sex: Female
  Weight: 57 kg

DRUGS (1)
  1. VITAMIN K INJECTION 10MG/ML HOSPIRA [Suspect]
     Indication: INTERNATIONAL NORMALISED RATIO ABNORMAL
     Dosage: 10MG ONCE IV DRIP
     Route: 041

REACTIONS (4)
  - DYSPNOEA [None]
  - EYE SWELLING [None]
  - INFUSION RELATED REACTION [None]
  - LACRIMATION INCREASED [None]
